FAERS Safety Report 18024986 (Version 1)
Quarter: 2020Q3

REPORT INFORMATION
  Report Type: Other
  Country: IL (occurrence: IL)
  Receive Date: 20200715
  Receipt Date: 20200715
  Transmission Date: 20201103
  Serious: Yes (Other)
  Sender: FDA-Public Use
  Company Number: IL-TARO-2020TAR01188

PATIENT
  Age: 62 Year
  Sex: Male

DRUGS (1)
  1. COUMADIN [Suspect]
     Active Substance: WARFARIN SODIUM
     Indication: TRICUSPID VALVE REPLACEMENT
     Dosage: UNK
     Route: 065
     Dates: start: 20200521, end: 20200527

REACTIONS (2)
  - Skin necrosis [Unknown]
  - Motor dysfunction [Unknown]
